FAERS Safety Report 11317626 (Version 1)
Quarter: 2015Q3

REPORT INFORMATION
  Report Type: Spontaneous
  Country: US (occurrence: None)
  Receive Date: 20150727
  Receipt Date: 20150727
  Transmission Date: 20151125
  Serious: No
  Sender: FDA-Public Use
  Company Number: None

PATIENT
  Age: 46 Year
  Sex: Male
  Weight: 92.08 kg

DRUGS (7)
  1. NORVASC [Concomitant]
     Active Substance: AMLODIPINE BESYLATE
  2. GEMFIBROZIL. [Suspect]
     Active Substance: GEMFIBROZIL
     Indication: BLOOD TRIGLYCERIDES INCREASED
     Dosage: 1, TWICE DAILY, TAKEN BY MOUTH
     Route: 048
     Dates: start: 20150706, end: 20150725
  3. TOPAMAX [Concomitant]
     Active Substance: TOPIRAMATE
  4. ZYRTEC D ALLERGY AND CONGESTION [Concomitant]
     Active Substance: CETIRIZINE HYDROCHLORIDE\PSEUDOEPHEDRINE HYDROCHLORIDE
  5. DICLOFINCA [Concomitant]
  6. NASOCORT [Concomitant]
     Active Substance: BUDESONIDE
  7. CENTRUM SILVER MENS FORUMLA [Concomitant]

REACTIONS (22)
  - Libido decreased [None]
  - Confusional state [None]
  - Tenderness [None]
  - Chest discomfort [None]
  - Depression [None]
  - Muscular weakness [None]
  - Chills [None]
  - Insomnia [None]
  - Heart rate irregular [None]
  - Pruritus [None]
  - Vision blurred [None]
  - Asthenia [None]
  - Headache [None]
  - Myalgia [None]
  - Hypoaesthesia [None]
  - Paraesthesia [None]
  - Pollakiuria [None]
  - Dizziness [None]
  - Rash [None]
  - Arthralgia [None]
  - Abdominal pain upper [None]
  - Fatigue [None]

NARRATIVE: CASE EVENT DATE: 20150713
